FAERS Safety Report 7326121-1 (Version None)
Quarter: 2011Q1

REPORT INFORMATION
  Report Type: 
  Country: None (occurrence: None)
  Receive Date: 20110217
  Receipt Date: 20110204
  Transmission Date: 20110831
  Serious: Yes (Other)
  Sender: FDA-Public Use
  Company Number: 2011SP005463

PATIENT
  Age: 67 Year

DRUGS (1)
  1. TEMODAL [Suspect]
     Indication: GLIOBLASTOMA
     Dates: start: 20090101

REACTIONS (2)
  - GENERAL PHYSICAL HEALTH DETERIORATION [None]
  - DISTURBANCE IN ATTENTION [None]
